FAERS Safety Report 10022993 (Version 1)
Quarter: 2014Q1

REPORT INFORMATION
  Report Type: Spontaneous
  Country: US (occurrence: US)
  Receive Date: 20140319
  Receipt Date: 20140319
  Transmission Date: 20141002
  Serious: No
  Sender: FDA-Public Use
  Company Number: US-SA-2014SA006746

PATIENT
  Sex: Female

DRUGS (2)
  1. LEUKINE [Suspect]
     Indication: PRODUCT USED FOR UNKNOWN INDICATION
     Dosage: LIQUID FORM
     Route: 065
  2. LEUKINE [Suspect]
     Indication: PRODUCT USED FOR UNKNOWN INDICATION
     Dosage: LYOPHILIZED FORM
     Route: 065

REACTIONS (3)
  - Injection site reaction [Unknown]
  - Skin irritation [Unknown]
  - Erythema [Unknown]
